FAERS Safety Report 24898754 (Version 2)
Quarter: 2025Q1

REPORT INFORMATION
  Report Type: Spontaneous
  Country: JP (occurrence: JP)
  Receive Date: 20250129
  Receipt Date: 20250327
  Transmission Date: 20250409
  Serious: Yes (Hospitalization, Other)
  Sender: BOEHRINGER INGELHEIM
  Company Number: JP-NBI-2024-BI-070593

PATIENT
  Age: 55 Year
  Sex: Female
  Weight: 63.4 kg

DRUGS (6)
  1. JARDIANCE [Suspect]
     Active Substance: EMPAGLIFLOZIN
     Indication: Diabetes mellitus
     Dates: start: 20241130, end: 20241203
  2. JARDIANCE [Suspect]
     Active Substance: EMPAGLIFLOZIN
  3. RYBELSUS [Suspect]
     Active Substance: SEMAGLUTIDE
     Indication: Diabetes mellitus
     Dates: start: 20241130, end: 20241203
  4. MITIGLINIDE [Concomitant]
     Active Substance: MITIGLINIDE
     Indication: Diabetes mellitus
     Dates: start: 20241130, end: 20241203
  5. CALBLOCK [Concomitant]
     Active Substance: AZELNIDIPINE
     Indication: Hypertension
  6. ATORVASTATIN [Concomitant]
     Active Substance: ATORVASTATIN
     Indication: Dyslipidaemia

REACTIONS (2)
  - Gastrointestinal disorder [Recovered/Resolved]
  - Euglycaemic diabetic ketoacidosis [Recovered/Resolved]

NARRATIVE: CASE EVENT DATE: 20241203
